FAERS Safety Report 8564752-1 (Version None)
Quarter: 2012Q3

REPORT INFORMATION
  Report Type: 
  Country: None (occurrence: None)
  Receive Date: 20120803
  Receipt Date: 20120726
  Transmission Date: 20120928
  Serious: Yes (Disabling)
  Sender: FDA-Public Use
  Company Number: US-009507513-1208USA000687

PATIENT

DRUGS (1)
  1. NUVARING [Suspect]

REACTIONS (1)
  - ADVERSE EVENT [None]
